FAERS Safety Report 7207691-0 (Version None)
Quarter: 2011Q1

REPORT INFORMATION
  Report Type: 
  Country: None (occurrence: None)
  Receive Date: 20110103
  Receipt Date: 20101229
  Transmission Date: 20110831
  Serious: Yes (Hospitalization)
  Sender: FDA-Public Use
  Company Number: BR-PFIZER INC-2010181156

PATIENT
  Age: 88 Year
  Sex: Female

DRUGS (6)
  1. FRONTAL [Suspect]
     Dosage: 2 MG, 1X/DAY
  2. FRONTAL [Suspect]
     Indication: ANXIETY
     Dosage: 1 MG, 1X/DAY
     Route: 048
     Dates: start: 20100227
  3. RIVOTRIL [Concomitant]
     Dosage: UNK
     Dates: start: 20100201
  4. BENICAR [Concomitant]
     Indication: HYPERTENSION
     Dosage: UNK
     Dates: start: 20100201
  5. GARDENAL ^AVENTIS^ [Concomitant]
     Dosage: UNK
     Dates: start: 20100201
  6. NORVASC [Concomitant]
     Indication: HYPERTENSION
     Dosage: UNK
     Dates: start: 20050101

REACTIONS (3)
  - DEMENTIA [None]
  - CONFUSIONAL STATE [None]
  - DAYDREAMING [None]
